FAERS Safety Report 8818924 (Version 4)
Quarter: 2012Q4

REPORT INFORMATION
  Report Type: 
  Country: NL (occurrence: NL)
  Receive Date: 20121001
  Receipt Date: 20121104
  Transmission Date: 20130627
  Serious: Yes (Hospitalization, Other)
  Sender: FDA-Public Use
  Company Number: PHHY2012NL083298

PATIENT
  Age: 27 Year
  Sex: Female
  Weight: 61 kg

DRUGS (2)
  1. SANDOSTATINE LAR [Suspect]
     Indication: ACROMEGALY
     Dosage: 30 mg, UNK
     Route: 030
     Dates: start: 201101
  2. SOMART [Concomitant]
     Dosage: 80 mg, twice weekly
     Dates: start: 201202

REACTIONS (2)
  - Neoplasm [Recovering/Resolving]
  - Therapeutic response decreased [Unknown]
